FAERS Safety Report 5528035-6 (Version None)
Quarter: 2007Q4

REPORT INFORMATION
  Report Type: 
  Country: None (occurrence: None)
  Receive Date: 20071128
  Receipt Date: 20071024
  Transmission Date: 20080405
  Serious: No
  Sender: FDA-Public Use
  Company Number: US-ASTRAZENECA-2006UW10709

PATIENT
  Age: 55 Year
  Sex: Male
  Weight: 73.6 kg

DRUGS (5)
  1. SEROQUEL [Suspect]
     Indication: SCHIZOPHRENIA, PARANOID TYPE
     Dosage: 25 MG - 100 MG
     Route: 048
     Dates: start: 20010624
  2. HALDOL [Concomitant]
     Dates: start: 19911101
  3. RISPERDAL [Concomitant]
  4. TRILAFON [Concomitant]
     Dates: start: 20020101
  5. ZYPREXA [Concomitant]

REACTIONS (1)
  - DIABETES MELLITUS [None]
